FAERS Safety Report 16266580 (Version 2)
Quarter: 2019Q3

REPORT INFORMATION
  Report Type: Report from Study
  Country: BR (occurrence: BR)
  Receive Date: 20190502
  Receipt Date: 20190828
  Transmission Date: 20191004
  Serious: No
  Sender: FDA-Public Use
  Company Number: PHHY2019BR099311

PATIENT
  Age: 61 Year
  Sex: Female
  Weight: 82 kg

DRUGS (3)
  1. COSENTYX [Suspect]
     Active Substance: SECUKINUMAB
     Dosage: UNK
     Route: 065
     Dates: start: 20190401
  2. COSENTYX [Suspect]
     Active Substance: SECUKINUMAB
     Indication: PSORIATIC ARTHROPATHY
     Dosage: UNK, QMO
     Route: 058
     Dates: start: 20180413
  3. COSENTYX [Suspect]
     Active Substance: SECUKINUMAB
     Dosage: UNK
     Route: 065
     Dates: start: 20190415

REACTIONS (2)
  - Influenza [Recovered/Resolved]
  - Catarrh [Recovered/Resolved]

NARRATIVE: CASE EVENT DATE: 201906
